FAERS Safety Report 9537169 (Version 3)
Quarter: 2013Q4

REPORT INFORMATION
  Report Type: Spontaneous
  Country: JP (occurrence: JP)
  Receive Date: 20130919
  Receipt Date: 20131009
  Transmission Date: 20140711
  Serious: Yes (Other)
  Sender: FDA-Public Use
  Company Number: JP-PFIZER INC-2013269013

PATIENT
  Age: 59 Year
  Sex: Male
  Weight: 77 kg

DRUGS (11)
  1. LYRICA [Suspect]
     Indication: POST HERPETIC NEURALGIA
     Dosage: 75 MG, 1X/DAY
     Route: 048
     Dates: start: 20130628, end: 20130704
  2. LYRICA [Suspect]
     Dosage: 75 MG, 2X/DAY
     Route: 048
     Dates: start: 20130705, end: 20130711
  3. LYRICA [Suspect]
     Dosage: 75 MG, 3X/DAY
     Route: 048
     Dates: start: 20130712, end: 20130718
  4. LYRICA [Suspect]
     Dosage: 150 MG, 2X/DAY
     Route: 048
     Dates: start: 20130719, end: 20130725
  5. LYRICA [Suspect]
     Dosage: 225 MG, 2X/DAY
     Route: 048
     Dates: start: 20130726, end: 20130905
  6. TS-1 [Suspect]
     Indication: PANCREATIC CARCINOMA
     Dosage: 60 MG, 2X/DAY
     Route: 048
     Dates: start: 20130111, end: 20130207
  7. TS-1 [Suspect]
     Dosage: 60 MG, 2X/DAY
     Route: 048
     Dates: start: 20130222, end: 20130321
  8. TS-1 [Suspect]
     Dosage: 60 MG, 2X/DAY
     Route: 048
     Dates: start: 20130404, end: 20130501
  9. TS-1 [Suspect]
     Dosage: 60 MG, 2X/DAY
     Route: 048
     Dates: start: 20130517, end: 20130613
  10. SITAGLIPTIN [Concomitant]
     Indication: TYPE 2 DIABETES MELLITUS
     Dosage: 50 MG, 1X/DAY
     Route: 048
  11. GLIMEPIRIDE [Concomitant]
     Indication: TYPE 2 DIABETES MELLITUS
     Dosage: 1 MG, 2X/DAY
     Route: 048

REACTIONS (6)
  - Diabetes mellitus inadequate control [Unknown]
  - Obesity [Not Recovered/Not Resolved]
  - Dizziness [Recovered/Resolved]
  - Disturbance in attention [Recovering/Resolving]
  - Memory impairment [Recovering/Resolving]
  - Neuropsychiatric syndrome [Unknown]
